FAERS Safety Report 16032939 (Version 1)
Quarter: 2019Q1

REPORT INFORMATION
  Report Type: Spontaneous
  Country: MY (occurrence: MY)
  Receive Date: 20190305
  Receipt Date: 20190305
  Transmission Date: 20190418
  Serious: Yes (Death)
  Sender: FDA-Public Use
  Company Number: MY-BAXTER-2019BAX004171

PATIENT
  Age: 49 Year
  Sex: Female

DRUGS (1)
  1. BUPICAN HEAVY [Suspect]
     Active Substance: BUPIVACAINE HYDROCHLORIDE
     Indication: ANAESTHESIA PROCEDURE
     Route: 037

REACTIONS (7)
  - Pulseless electrical activity [Fatal]
  - Ventricular fibrillation [Fatal]
  - Pain [Fatal]
  - Hypoaesthesia [Fatal]
  - Medication error [Unknown]
  - Dyskinesia [Fatal]
  - Supraventricular tachycardia [Fatal]
